FAERS Safety Report 6554562-9 (Version None)
Quarter: 2010Q1

REPORT INFORMATION
  Report Type: 
  Country: None (occurrence: None)
  Receive Date: 20100127
  Receipt Date: 20100122
  Transmission Date: 20100710
  Serious: Yes (Other)
  Sender: FDA-Public Use
  Company Number: PHHY2010NL03599

PATIENT

DRUGS (4)
  1. COMTAN [Suspect]
     Indication: PARKINSON'S DISEASE
     Dosage: 200 MG PER TIME
  2. REQUIP [Suspect]
     Indication: PARKINSON'S DISEASE
     Dosage: 2 MG PER TIME
  3. MADOPAR [Suspect]
     Indication: PARKINSON'S DISEASE
     Dosage: 250 MG PER TIME
  4. SINEMET [Suspect]
     Indication: PARKINSON'S DISEASE

REACTIONS (2)
  - BLEPHAROPLASTY [None]
  - DIPLOPIA [None]
